FAERS Safety Report 9381970 (Version 1)
Quarter: 2013Q3

REPORT INFORMATION
  Report Type: Spontaneous
  Country: GB (occurrence: GB)
  Receive Date: 20130703
  Receipt Date: 20130703
  Transmission Date: 20140515
  Serious: Yes (Hospitalization)
  Sender: FDA-Public Use
  Company Number: GB-ALLERGAN-1309544US

PATIENT
  Age: 49 Year
  Sex: Female
  Weight: 59 kg

DRUGS (5)
  1. BOTOX? [Suspect]
     Indication: MIGRAINE
     Dosage: UNK, SINGLE
     Dates: start: 201305, end: 201305
  2. BOTOX? [Suspect]
     Dosage: UNK UNK, SINGLE
     Dates: start: 201301, end: 201301
  3. MAXALT [Suspect]
     Indication: PRODUCT USED FOR UNKNOWN INDICATION
     Dosage: 10 MG, UNK
     Route: 048
     Dates: start: 20130103
  4. MAXALT [Suspect]
     Dosage: UNK
     Dates: start: 20040102
  5. AMITRIPTYLINE [Concomitant]
     Indication: PRODUCT USED FOR UNKNOWN INDICATION

REACTIONS (2)
  - Drug interaction [Unknown]
  - Pruritus [Not Recovered/Not Resolved]
